FAERS Safety Report 22251343 (Version 1)
Quarter: 2023Q2

REPORT INFORMATION
  Report Type: Report from Study
  Country: US (occurrence: US)
  Receive Date: 20230425
  Receipt Date: 20230425
  Transmission Date: 20230721
  Serious: Yes (Disabling)
  Sender: FDA-Public Use
  Company Number: US-SPECGX-T202301041

PATIENT
  Age: 66 Year
  Sex: Female

DRUGS (8)
  1. ACETAMINOPHEN\OXYCODONE HYDROCHLORIDE [Suspect]
     Active Substance: ACETAMINOPHEN\OXYCODONE HYDROCHLORIDE
     Indication: Product used for unknown indication
     Dosage: UNK
     Route: 065
  2. CORTICOTROPIN [Suspect]
     Active Substance: CORTICOTROPIN
     Indication: Product used for unknown indication
     Dosage: UNK, EVERY 72 HOURS
     Route: 065
  3. CORTICOTROPIN [Suspect]
     Active Substance: CORTICOTROPIN
     Dosage: UNK, TWO TIMES PER WEEK
     Route: 065
  4. FATHER JOHNS MEDICINE PLUS [Suspect]
     Active Substance: CHLORPHENIRAMINE MALEATE\DEXTROMETHORPHAN HYDROBROMIDE\PHENYLEPHRINE HYDROCHLORIDE
     Indication: Cough
     Dosage: UNK
     Route: 065
  5. OZEMPIC [Concomitant]
     Active Substance: SEMAGLUTIDE
     Indication: Diabetes mellitus
     Dosage: UNK
     Route: 065
  6. CODEINE [Concomitant]
     Active Substance: CODEINE
     Indication: Cough
     Dosage: UNK
     Route: 065
  7. CODEINE [Concomitant]
     Active Substance: CODEINE
     Indication: Asthma
  8. CODEINE [Concomitant]
     Active Substance: CODEINE
     Indication: Sarcoidosis

REACTIONS (15)
  - Sitting disability [Unknown]
  - Pain in extremity [Unknown]
  - Peripheral swelling [Unknown]
  - Synovial cyst [Unknown]
  - Salivary hypersecretion [Unknown]
  - Weight decreased [Unknown]
  - Cough [Unknown]
  - Irritability [Unknown]
  - Pain [Unknown]
  - Feeling abnormal [Unknown]
  - Constipation [Unknown]
  - Insomnia [Unknown]
  - Vomiting [Unknown]
  - Hypoaesthesia [Unknown]
  - Flatulence [Unknown]

NARRATIVE: CASE EVENT DATE: 20230413
